FAERS Safety Report 20580757 (Version 3)
Quarter: 2022Q4

REPORT INFORMATION
  Report Type: Spontaneous
  Country: US (occurrence: US)
  Receive Date: 20220311
  Receipt Date: 20221020
  Transmission Date: 20230113
  Serious: Yes (Hospitalization)
  Sender: FDA-Public Use
  Company Number: US-UCBSA-2022007024

PATIENT
  Sex: Female
  Weight: 111 kg

DRUGS (1)
  1. CIMZIA [Suspect]
     Active Substance: CERTOLIZUMAB PEGOL
     Indication: Rheumatoid arthritis
     Dosage: 400 MILLIGRAM, EV 4 WEEKS
     Route: 058
     Dates: start: 202104

REACTIONS (5)
  - Joint injury [Unknown]
  - Cough [Unknown]
  - Product use issue [Unknown]
  - Therapy cessation [Unknown]
  - Inability to afford medication [Unknown]
